FAERS Safety Report 14018142 (Version 1)
Quarter: 2017Q3

REPORT INFORMATION
  Report Type: Spontaneous
  Country: US (occurrence: None)
  Receive Date: 20170927
  Receipt Date: 20170927
  Transmission Date: 20171128
  Serious: Yes (Death)
  Sender: FDA-Public Use
  Company Number: None

PATIENT
  Age: 53 Year
  Sex: Female

DRUGS (5)
  1. PROCHLORPER [Concomitant]
  2. XALKORI [Suspect]
     Active Substance: CRIZOTINIB
     Indication: LUNG NEOPLASM MALIGNANT
     Dosage: 1 CAPSULE BID ORAL
     Route: 048
     Dates: start: 20170819
  3. LORAZEPAM. [Concomitant]
     Active Substance: LORAZEPAM
  4. HYDROCODONE [Concomitant]
     Active Substance: HYDROCODONE
  5. ONDANSETRON [Concomitant]
     Active Substance: ONDANSETRON

REACTIONS (1)
  - Death [None]
